FAERS Safety Report 8408450-3 (Version None)
Quarter: 2012Q2

REPORT INFORMATION
  Report Type: 
  Country: None (occurrence: None)
  Receive Date: 20120604
  Receipt Date: 20120525
  Transmission Date: 20120825
  Serious: Yes (Hospitalization)
  Sender: FDA-Public Use
  Company Number: US-JNJFOC-20120515486

PATIENT
  Sex: Female
  Weight: 36 kg

DRUGS (4)
  1. MESALAMINE [Concomitant]
     Route: 048
  2. REMICADE [Suspect]
     Indication: INFLAMMATORY BOWEL DISEASE
     Route: 042
     Dates: start: 20120409
  3. PROBIOTICS [Concomitant]
     Route: 048
  4. CAT'S CLAW [Concomitant]
     Route: 048

REACTIONS (1)
  - SMALL INTESTINAL STENOSIS [None]
